FAERS Safety Report 14998640 (Version 2)
Quarter: 2018Q2

REPORT INFORMATION
  Report Type: Report from Study
  Country: CN (occurrence: CN)
  Receive Date: 20180612
  Receipt Date: 20180615
  Transmission Date: 20180711
  Serious: Yes (Other)
  Sender: FDA-Public Use
  Company Number: CN-ROCHE-2134925

PATIENT

DRUGS (3)
  1. CAPECITABINE. [Suspect]
     Active Substance: CAPECITABINE
     Indication: COLON CANCER
     Route: 065
  2. FLUOROURACIL. [Suspect]
     Active Substance: FLUOROURACIL
     Indication: COLON CANCER
     Route: 065
  3. IRINOTECAN [Suspect]
     Active Substance: IRINOTECAN
     Indication: COLON CANCER
     Route: 065

REACTIONS (8)
  - Diarrhoea [Unknown]
  - Alopecia [Unknown]
  - Thrombocytopenia [Unknown]
  - Nausea [Unknown]
  - Liver injury [Unknown]
  - Anaemia [Unknown]
  - Vomiting [Unknown]
  - Leukopenia [Unknown]
